FAERS Safety Report 8023613-7 (Version None)
Quarter: 2012Q1

REPORT INFORMATION
  Report Type: 
  Country: None (occurrence: None)
  Receive Date: 20120104
  Receipt Date: 20120104
  Transmission Date: 20120608
  Serious: Yes (Other)
  Sender: FDA-Public Use
  Company Number: None

PATIENT
  Sex: Female

DRUGS (1)
  1. ENBREL [Suspect]
     Dosage: 50MG Q WEEK SQ
     Route: 058
     Dates: start: 20110307, end: 20111205

REACTIONS (2)
  - INFECTION [None]
  - IMMUNOSUPPRESSION [None]
